FAERS Safety Report 5891722-4 (Version None)
Quarter: 2008Q3

REPORT INFORMATION
  Report Type: 
  Country: None (occurrence: None)
  Receive Date: 20080922
  Receipt Date: 20080916
  Transmission Date: 20090109
  Serious: Yes (Life-Threatening, Hospitalization, Other)
  Sender: FDA-Public Use
  Company Number: GB-B.I. PHARMACEUTICALS,INC./RIDGEFIELD-2008-UK-01378UK

PATIENT
  Age: 59 Year
  Sex: Male

DRUGS (6)
  1. PRAMIPEXOLE DIHYDROCHLORIDE [Suspect]
     Indication: PARKINSON'S DISEASE
     Dosage: 6MG
     Route: 048
     Dates: end: 20080801
  2. 1/2 SINEMET CR [Suspect]
     Indication: PARKINSON'S DISEASE
     Dosage: 125MG
     Route: 048
  3. MADOPAR [Suspect]
     Indication: PARKINSON'S DISEASE
     Dosage: 250MG
     Route: 048
  4. STALEVO 100 [Suspect]
     Indication: PARKINSON'S DISEASE
     Dosage: 600NR
     Route: 048
  5. RASAGILINE [Suspect]
     Indication: PARKINSON'S DISEASE
     Dosage: 1MG
     Route: 048
  6. PAROXETINE HCL [Concomitant]

REACTIONS (7)
  - ABNORMAL BEHAVIOUR [None]
  - DRUG ABUSE [None]
  - HYPERSEXUALITY [None]
  - MOOD SWINGS [None]
  - RESTLESSNESS [None]
  - SUICIDE ATTEMPT [None]
  - THEFT [None]
